APPROVED DRUG PRODUCT: DIPIVEFRIN HYDROCHLORIDE
Active Ingredient: DIPIVEFRIN HYDROCHLORIDE
Strength: 0.1%
Dosage Form/Route: SOLUTION/DROPS;OPHTHALMIC
Application: A074188 | Product #001
Applicant: BAUSCH AND LOMB PHARMACEUTICALS INC
Approved: May 19, 1995 | RLD: No | RS: No | Type: DISCN